FAERS Safety Report 18639918 (Version 1)
Quarter: 2020Q4

REPORT INFORMATION
  Report Type: Spontaneous
  Country: US (occurrence: US)
  Receive Date: 20201220
  Receipt Date: 20201220
  Transmission Date: 20210114
  Serious: No
  Sender: FDA-Public Use
  Company Number: US-PACIRA-202000014

PATIENT
  Age: 26 Year
  Sex: Female

DRUGS (2)
  1. ROPIVACAINE. [Suspect]
     Active Substance: ROPIVACAINE HYDROCHLORIDE
     Indication: NERVE BLOCK
     Dosage: 20 ML ADMIXED WITH 20 ML EXPAREL; BILATERALLY SINGLE USE
     Route: 065
     Dates: start: 20200129, end: 20200129
  2. EXPAREL [Suspect]
     Active Substance: BUPIVACAINE
     Indication: NERVE BLOCK
     Dosage: 20 ML ADMIXED WITH 20 ML ROPIVACAINE; BILATERALLY SINGLE USE
     Route: 065
     Dates: start: 20200129, end: 20200129

REACTIONS (2)
  - Labelled drug-drug interaction medication error [Unknown]
  - No adverse event [Unknown]

NARRATIVE: CASE EVENT DATE: 20200129
